FAERS Safety Report 6962152-9 (Version None)
Quarter: 2010Q3

REPORT INFORMATION
  Report Type: 
  Country: None (occurrence: None)
  Receive Date: 20100901
  Receipt Date: 20100901
  Transmission Date: 20110219
  Serious: Yes (Hospitalization)
  Sender: FDA-Public Use
  Company Number: None

PATIENT
  Age: 64 Year
  Sex: Female
  Weight: 68.0396 kg

DRUGS (2)
  1. VISIPAQUE [Suspect]
     Indication: ANGIOGRAM
     Dosage: 160ML
     Dates: start: 20100824, end: 20100825
  2. VISIPAQUE [Suspect]
     Indication: ANGIOPLASTY
     Dosage: 160ML
     Dates: start: 20100824, end: 20100825

REACTIONS (9)
  - CARDIAC ARREST [None]
  - DISORIENTATION [None]
  - FAECAL INCONTINENCE [None]
  - LETHARGY [None]
  - NAUSEA [None]
  - RASH [None]
  - RESPIRATORY DISTRESS [None]
  - SINUS BRADYCARDIA [None]
  - VOMITING [None]
